FAERS Safety Report 8909894 (Version 1)
Quarter: 2012Q4

REPORT INFORMATION
  Report Type: 
  Country: US (occurrence: US)
  Receive Date: 20121115
  Receipt Date: 20121115
  Transmission Date: 20130627
  Serious: No
  Sender: FDA-Public Use
  Company Number: US-PFIZER INC-2012283113

PATIENT
  Sex: Male

DRUGS (3)
  1. LYRICA [Suspect]
     Indication: DIABETIC PERIPHERAL NEUROPATHY
     Dosage: 50 mg, 3x/day
  2. LYRICA [Suspect]
     Dosage: 75 mg, 3x/day
  3. LYRICA [Suspect]
     Dosage: UNK

REACTIONS (1)
  - Arthropathy [Unknown]
